FAERS Safety Report 17441076 (Version 4)
Quarter: 2021Q4

REPORT INFORMATION
  Report Type: Spontaneous
  Country: FR (occurrence: FR)
  Receive Date: 20200220
  Receipt Date: 20211117
  Transmission Date: 20220303
  Serious: Yes (Life-Threatening, Disabling, Other)
  Sender: FDA-Public Use
  Company Number: None

PATIENT
  Age: 58 Year
  Sex: Female

DRUGS (3)
  1. BUSULFAN [Suspect]
     Active Substance: BUSULFAN
     Indication: B-cell lymphoma
     Dosage: UNK
     Route: 042
     Dates: start: 20190325
  2. BUSULFAN [Suspect]
     Active Substance: BUSULFAN
     Indication: Off label use
  3. THIOTEPA [Suspect]
     Active Substance: THIOTEPA
     Indication: B-cell lymphoma
     Dosage: UNK
     Route: 042
     Dates: start: 20190325

REACTIONS (3)
  - Pulmonary arterial hypertension [Recovered/Resolved with Sequelae]
  - Off label use [Unknown]
  - Product use in unapproved indication [Unknown]

NARRATIVE: CASE EVENT DATE: 20190714
